FAERS Safety Report 5524673-5 (Version None)
Quarter: 2007Q4

REPORT INFORMATION
  Report Type: 
  Country: None (occurrence: None)
  Receive Date: 20071123
  Receipt Date: 20071114
  Transmission Date: 20080405
  Serious: Yes (Hospitalization)
  Sender: FDA-Public Use
  Company Number: US-ROCHE-531413

PATIENT
  Age: 72 Year
  Sex: Female

DRUGS (11)
  1. BONIVA [Suspect]
     Indication: OSTEOPOROSIS
     Dosage: STARTED ORAL BONIVA ABOUT ONE YEAR AGO
     Route: 048
     Dates: start: 20061101, end: 20071001
  2. IMDUR [Concomitant]
  3. SYNTHROID [Concomitant]
  4. FOLIC ACID [Concomitant]
  5. COZAAR [Concomitant]
     Dosage: REPORTED AS 'COZZAR'
  6. HYDRALAZINE HCL [Concomitant]
  7. DITROPAN XL [Concomitant]
     Dosage: REPORTED AS 'DIPROPAN XL'
  8. ZEGERID [Concomitant]
     Dosage: REPORTED AS 'ZEDERID'
  9. ASTELIN [Concomitant]
  10. CATAPRES [Concomitant]
     Dosage: REPORTED AS 'CATAPRES PATCH'
     Route: 065
  11. NITROGLYCERIN [Concomitant]

REACTIONS (5)
  - GASTRIC PH DECREASED [None]
  - GASTRIC STENOSIS [None]
  - GASTROINTESTINAL STENOSIS [None]
  - OESOPHAGEAL STENOSIS [None]
  - SMALL INTESTINE ULCER [None]
